FAERS Safety Report 13895901 (Version 1)
Quarter: 2017Q3

REPORT INFORMATION
  Report Type: Spontaneous
  Country: US (occurrence: US)
  Receive Date: 20170821
  Receipt Date: 20170821
  Transmission Date: 20171127
  Serious: Yes (Other)
  Sender: FDA-Public Use
  Company Number: None

PATIENT
  Age: 18 Year
  Sex: Female
  Weight: 85.5 kg

DRUGS (2)
  1. AFRIN [Suspect]
     Active Substance: OXYMETAZOLINE
     Indication: PULMONARY CONGESTION
  2. GENERIC NASAL SPRAY [Suspect]
     Active Substance: UNSPECIFIED INGREDIENT

REACTIONS (3)
  - Dizziness [None]
  - Cataract [None]
  - Nausea [None]

NARRATIVE: CASE EVENT DATE: 20170807
